FAERS Safety Report 6150899-6 (Version None)
Quarter: 2009Q2

REPORT INFORMATION
  Report Type: 
  Country: None (occurrence: None)
  Receive Date: 20090408
  Receipt Date: 20090331
  Transmission Date: 20091009
  Serious: Yes (Other)
  Sender: FDA-Public Use
  Company Number: 00000070

PATIENT
  Sex: Female
  Weight: 63.05 kg

DRUGS (2)
  1. CARBAMAZEPINE [Suspect]
     Dosage: 200 MG/T.I.D ORALLY
     Route: 048
     Dates: start: 20090202
  2. LEVOXYL [Concomitant]

REACTIONS (3)
  - CEREBRAL DISORDER [None]
  - MENTAL IMPAIRMENT [None]
  - MUSCLE TWITCHING [None]
